FAERS Safety Report 6357868-1 (Version None)
Quarter: 2009Q3

REPORT INFORMATION
  Report Type: 
  Country: None (occurrence: None)
  Receive Date: 20090911
  Receipt Date: 20090828
  Transmission Date: 20100115
  Serious: Yes (Other)
  Sender: FDA-Public Use
  Company Number: 1000008715

PATIENT
  Age: 38 Year
  Sex: Male

DRUGS (6)
  1. ESCITALOPRAM [Suspect]
     Dosage: ORAL
     Route: 048
     Dates: start: 20090701, end: 20090824
  2. RITUXAN [Suspect]
     Indication: B-CELL LYMPHOMA
     Dosage: 17.8571 MG/M2 (375 M G/M2, 1 IN 21 D), INTRAVENOUS (NOT OTHERWISE SPECIFIED)
     Route: 042
     Dates: start: 20090301, end: 20090813
  3. DOXORUBICIN (INJECTION) [Concomitant]
  4. CYCLOPHOSPHAMIDE (INJECTION) [Concomitant]
  5. VINCRISTINE [Concomitant]
  6. PREDNISONE [Concomitant]

REACTIONS (2)
  - AGRANULOCYTOSIS [None]
  - PANCYTOPENIA [None]
